FAERS Safety Report 20891558 (Version 2)
Quarter: 2022Q3

REPORT INFORMATION
  Report Type: Spontaneous
  Country: US (occurrence: US)
  Receive Date: 20220530
  Receipt Date: 20220701
  Transmission Date: 20221027
  Serious: No
  Sender: FDA-Public Use
  Company Number: US-ADVANZ PHARMA-202205003058

PATIENT

DRUGS (6)
  1. HYDROXYCHLOROQUINE [Suspect]
     Active Substance: HYDROXYCHLOROQUINE
     Indication: Product used for unknown indication
     Dosage: UNK, PLAQUENIL
     Route: 065
     Dates: end: 2022
  2. HUMIRA [Suspect]
     Active Substance: ADALIMUMAB
     Indication: Rheumatoid arthritis
     Dosage: 40 MG (1 IN 2, WEEK)
     Route: 058
  3. Moderna COVID-19 vaccine (Elasomeran) [Concomitant]
     Indication: COVID-19 immunisation
     Dosage: 1 DOSAGE FORM (FIRST DOSE 1 IN 1 ONCE)
     Route: 030
     Dates: start: 20210330
  4. Moderna COVID-19 vaccine (Elasomeran) [Concomitant]
     Dosage: 1 DOSAGE FORM (SECOND DOSE 1 IN 1 ONCE)
     Route: 030
     Dates: start: 20210427
  5. Moderna COVID-19 vaccine (Elasomeran) [Concomitant]
     Dosage: 1 DOSAGE FORM (BOOSTER DOSE 1 IN 1 ONCE)
     Route: 030
     Dates: start: 20211012
  6. Moderna COVID-19 vaccine (Elasomeran) [Concomitant]
     Dosage: 1 DOSAGE FORM (SECOND BOOSTER DOSE 1 IN 1 ONCE)
     Route: 030
     Dates: start: 20220418

REACTIONS (6)
  - Fall [Unknown]
  - Burning sensation [Unknown]
  - Localised infection [Unknown]
  - Pain [Unknown]
  - Pain in extremity [Unknown]
  - Headache [Unknown]

NARRATIVE: CASE EVENT DATE: 20220501
